FAERS Safety Report 10215926 (Version 2)
Quarter: 2014Q3

REPORT INFORMATION
  Report Type: Spontaneous
  Country: US (occurrence: None)
  Receive Date: 20140602
  Receipt Date: 20140721
  Transmission Date: 20150326
  Serious: No
  Sender: FDA-Public Use
  Company Number: 2014-00072

PATIENT
  Age: 75 Year
  Sex: Female
  Weight: 61.69 kg

DRUGS (2)
  1. ZICAM [Suspect]
     Active Substance: ACETAMINOPHEN\CHLORPHENIRAMINE MALEATE\DEXTROMETHORPHAN HYDROBROMIDE\DOXYLAMINE SUCCINATE\PHENYLEPHRINE HYDROCHLORIDE
     Indication: PULMONARY CONGESTION
     Dosage: EVERY 4-6 HOURS
     Dates: start: 20140520, end: 20140521
  2. ZICAM [Suspect]
     Active Substance: ACETAMINOPHEN\CHLORPHENIRAMINE MALEATE\DEXTROMETHORPHAN HYDROBROMIDE\DOXYLAMINE SUCCINATE\PHENYLEPHRINE HYDROCHLORIDE
     Indication: OROPHARYNGEAL PAIN
     Dosage: EVERY 4-6 HOURS
     Dates: start: 20140520, end: 20140521

REACTIONS (4)
  - Feeling abnormal [None]
  - Dry mouth [None]
  - Anosmia [None]
  - Ageusia [None]

NARRATIVE: CASE EVENT DATE: 20140521
